FAERS Safety Report 15455523 (Version 1)
Quarter: 2018Q4

REPORT INFORMATION
  Report Type: Spontaneous
  Country: GB (occurrence: GB)
  Receive Date: 20181002
  Receipt Date: 20181002
  Transmission Date: 20190204
  Serious: Yes (Other)
  Sender: FDA-Public Use
  Company Number: GB-GLAXOSMITHKLINE-GB2018174941

PATIENT
  Age: 28 Year
  Sex: Female
  Weight: 52.61 kg

DRUGS (1)
  1. LAMOTRIGINE. [Suspect]
     Active Substance: LAMOTRIGINE
     Indication: DEPERSONALISATION/DEREALISATION DISORDER
     Dosage: 150 MG, UNK
     Route: 048
     Dates: start: 20180302

REACTIONS (1)
  - Alopecia [Not Recovered/Not Resolved]
